FAERS Safety Report 7624401-3 (Version None)
Quarter: 2011Q3

REPORT INFORMATION
  Report Type: 
  Country: None (occurrence: None)
  Receive Date: 20110720
  Receipt Date: 20110715
  Transmission Date: 20111222
  Serious: Yes (Hospitalization, Other)
  Sender: FDA-Public Use
  Company Number: US-PFIZER INC-2011141298

PATIENT
  Sex: Male

DRUGS (14)
  1. VITAMIN D [Concomitant]
     Dosage: 1000 MG, 1X/DAY
  2. METAXALONE [Concomitant]
     Dosage: 800 MG, 2X/DAY
  3. NORTRIPTYLINE [Concomitant]
     Dosage: 25 MG, 1X/DAY
  4. SYMBICORT [Concomitant]
     Dosage: UNK, 2X/DAY
  5. MAGNESIUM OXIDE [Concomitant]
     Dosage: 400 MG, 1X/DAY
  6. FUROSEMIDE [Concomitant]
     Dosage: 40 MG, 1X/DAY
  7. NEXIUM [Concomitant]
     Dosage: 40 MG, 2X/DAY
  8. PRADAXA [Concomitant]
     Dosage: 150 MG, 2X/DAY
  9. SIMVASTATIN [Suspect]
     Indication: BLOOD CHOLESTEROL INCREASED
     Dosage: 40 MG, 1X/DAY
     Route: 048
     Dates: start: 20100101
  10. XOPENEX [Concomitant]
     Dosage: UNK
  11. PERCOCET [Concomitant]
     Dosage: UNK, AS NEEDED
  12. LIPITOR [Suspect]
     Indication: BLOOD CHOLESTEROL INCREASED
     Dosage: 10 MG, 1X/DAY
     Route: 048
  13. NORTRIPTYLINE [Concomitant]
     Dosage: 75 MG, 1X/DAY
  14. AMIODARONE [Concomitant]
     Dosage: 200 MG, 2X/DAY

REACTIONS (7)
  - DYSPNOEA [None]
  - MUSCULOSKELETAL DISCOMFORT [None]
  - INCOHERENT [None]
  - HYPERTENSION [None]
  - IMMUNE SYSTEM DISORDER [None]
  - ATRIAL FIBRILLATION [None]
  - CONFUSIONAL STATE [None]
